FAERS Safety Report 21213541 (Version 4)
Quarter: 2022Q4

REPORT INFORMATION
  Report Type: Report from Study
  Country: DE (occurrence: None)
  Receive Date: 20220815
  Receipt Date: 20221201
  Transmission Date: 20230113
  Serious: Yes (Hospitalization, Disabling)
  Sender: FDA-Public Use
  Company Number: DE-ROCHE-1754630

PATIENT
  Age: 43 Year
  Sex: Male
  Weight: 93 kg

DRUGS (76)
  1. PLACEBO [Suspect]
     Active Substance: UNSPECIFIED INGREDIENT
     Indication: Primary progressive multiple sclerosis
     Dosage: FREQUENCY: TWO INFUSIONS SEPARATED BY 14 DAYS EACH CYCLE. EACH CYCLE LASTS 24 WEEKS.
     Route: 042
     Dates: start: 20121105, end: 20151115
  2. OCRELIZUMAB [Suspect]
     Active Substance: OCRELIZUMAB
     Indication: Primary progressive multiple sclerosis
     Dosage: CYCLE 1: TWO INFUSIONS OF 300 MG OCRELIZUMAB SEPARATED BY 14 DAYS, (ON DAY 1 AND 15).?SUBSEQUENT CYC
     Route: 042
     Dates: start: 20151116
  3. DIMETHINDENE [Concomitant]
     Active Substance: DIMETHINDENE
     Indication: Oral herpes
     Dosage: PRE-TREATMENT
     Dates: start: 20121105
  4. DIMETHINDENE [Concomitant]
     Active Substance: DIMETHINDENE
     Indication: Premedication
     Dosage: PRN (AS NEEDED)
     Dates: start: 20121031
  5. METHYLPREDNISOLONE [Concomitant]
     Active Substance: METHYLPREDNISOLONE
     Indication: Primary progressive multiple sclerosis
     Dosage: PRE-TREATMENT
     Dates: start: 20121105
  6. METHYLPREDNISOLONE [Concomitant]
     Active Substance: METHYLPREDNISOLONE
     Indication: Premedication
     Dates: start: 20110201, end: 20110203
  7. METHYLPREDNISOLONE [Concomitant]
     Active Substance: METHYLPREDNISOLONE
     Dates: start: 20120521, end: 20120523
  8. ACETAMINOPHEN [Concomitant]
     Active Substance: ACETAMINOPHEN
     Indication: Premedication
     Dosage: PRE-TREATMENT
     Dates: start: 20121105
  9. ANGOCIN [Concomitant]
     Indication: Cough
     Dosage: COMED TO SELFCATHETERIZATION
     Dates: start: 20140801, end: 20140819
  10. ANGOCIN [Concomitant]
     Dates: start: 20160201, end: 20160204
  11. ANGOCIN [Concomitant]
     Dates: start: 20160119, end: 20160126
  12. ANGOCIN [Concomitant]
     Dates: start: 20160127, end: 20160131
  13. APIS MELLIFICA;ARISTOLOCHIA CLEMATITIS EXTRACT;ARNICA MONTANA;HEPARIN [Concomitant]
     Dates: start: 20121025, end: 20121125
  14. ASPIRIN [Concomitant]
     Active Substance: ASPIRIN
     Indication: Headache
     Dates: start: 2002
  15. BACLOFEN [Concomitant]
     Active Substance: BACLOFEN
     Indication: Multiple sclerosis
     Dates: start: 20140701
  16. BACLOFEN [Concomitant]
     Active Substance: BACLOFEN
     Indication: Muscle spasticity
     Dates: start: 20130304, end: 20140519
  17. BACLOFEN [Concomitant]
     Active Substance: BACLOFEN
     Dates: start: 20130210, end: 20130226
  18. BACLOFEN [Concomitant]
     Active Substance: BACLOFEN
     Dates: start: 20120515, end: 20130123
  19. BACLOFEN [Concomitant]
     Active Substance: BACLOFEN
     Dates: start: 20140218, end: 20140303
  20. BACLOFEN [Concomitant]
     Active Substance: BACLOFEN
     Dates: start: 20140520, end: 20140630
  21. BACLOFEN [Concomitant]
     Active Substance: BACLOFEN
     Dates: start: 20130124, end: 20130209
  22. BACLOFEN [Concomitant]
     Active Substance: BACLOFEN
     Route: 048
     Dates: start: 20160615
  23. VALERIAN [Concomitant]
     Active Substance: VALERIAN
     Dosage: INDICATION: SLEEP ONSET A. MAINTAINANCE DISORDER
     Dates: start: 20130408, end: 20130525
  24. BISOPROLOL [Concomitant]
     Active Substance: BISOPROLOL
     Indication: Hypertension
     Dates: start: 201102, end: 20160329
  25. BISOPROLOL [Concomitant]
     Active Substance: BISOPROLOL
     Dates: start: 20160401
  26. BISOPROLOL [Concomitant]
     Active Substance: BISOPROLOL
     Dates: start: 20160330, end: 20160331
  27. POVIDONE-IODINE [Concomitant]
     Active Substance: POVIDONE-IODINE
     Indication: Nail bed inflammation
     Dates: start: 20131217, end: 20131231
  28. CLOTRIMAZOLE [Concomitant]
     Active Substance: CLOTRIMAZOLE
     Indication: Fungal foot infection
     Dates: start: 20150802, end: 20150822
  29. CLOTRIMAZOLE [Concomitant]
     Active Substance: CLOTRIMAZOLE
     Indication: Fungal infection
  30. CLOTRIMAZOLE [Concomitant]
     Active Substance: CLOTRIMAZOLE
     Indication: Anal fungal infection
  31. CETIRIZINE HYDROCHLORIDE [Concomitant]
     Active Substance: CETIRIZINE HYDROCHLORIDE
     Indication: Seasonal allergy
     Dates: start: 1982
  32. ENOXAPARIN SODIUM [Concomitant]
     Active Substance: ENOXAPARIN SODIUM
     Indication: Thrombosis prophylaxis
     Dates: start: 20140721, end: 20140723
  33. CLOTRIMAZOLE [Concomitant]
     Active Substance: CLOTRIMAZOLE
     Indication: Fungal foot infection
     Dates: start: 20140810, end: 20140822
  34. CLOTRIMAZOLE [Concomitant]
     Active Substance: CLOTRIMAZOLE
     Indication: Groin infection
  35. CLOTRIMAZOLE [Concomitant]
     Active Substance: CLOTRIMAZOLE
     Indication: Anal fungal infection
  36. DILTIAZEM [Concomitant]
     Active Substance: DILTIAZEM
     Indication: Anal fissure
     Dates: start: 20151202, end: 20160406
  37. DALFAMPRIDINE [Concomitant]
     Active Substance: DALFAMPRIDINE
     Indication: Ataxia
     Dosage: 2X10 MG
     Dates: start: 20140806
  38. TOVIAZ [Concomitant]
     Active Substance: FESOTERODINE FUMARATE
     Indication: Bladder dysfunction
     Dates: start: 20140802
  39. TOVIAZ [Concomitant]
     Active Substance: FESOTERODINE FUMARATE
     Dates: start: 20140730, end: 20140801
  40. ICHTHOLAN [Concomitant]
     Indication: Nail bed inflammation
     Dates: start: 20131121, end: 20131216
  41. LAMISIL [Concomitant]
     Active Substance: TERBINAFINE HYDROCHLORIDE
     Indication: Fungal foot infection
     Dates: start: 20140704, end: 20140809
  42. LAMISIL [Concomitant]
     Active Substance: TERBINAFINE HYDROCHLORIDE
     Indication: Groin infection
  43. LAMISIL [Concomitant]
     Active Substance: TERBINAFINE HYDROCHLORIDE
     Indication: Anal fungal infection
  44. LYRICA [Concomitant]
     Active Substance: PREGABALIN
     Indication: Pain
     Dosage: INDICATION: STABBING PAIN ARM, SHOULDER, THIGH
     Dates: start: 20140627, end: 20140730
  45. LYRICA [Concomitant]
     Active Substance: PREGABALIN
     Route: 048
     Dates: start: 20140731
  46. NASENSPRAY RATIOPHARM [Concomitant]
     Indication: Nasopharyngitis
     Dates: start: 20130312, end: 20130315
  47. NASENSPRAY RATIOPHARM [Concomitant]
     Indication: Rhinitis
     Dates: start: 20130115, end: 20130122
  48. NASENSPRAY RATIOPHARM [Concomitant]
     Dates: start: 20121015, end: 20121022
  49. PANTOZOL [Concomitant]
     Active Substance: PANTOPRAZOLE SODIUM
     Dosage: INDICATION: PROPHYLAXIS STOMACH
     Dates: start: 20140721, end: 20140723
  50. PHYTOHUSTIL [Concomitant]
     Indication: Cough
     Dates: start: 20160118, end: 20160122
  51. PHYTOHUSTIL [Concomitant]
     Dates: start: 20160123
  52. PRAMIPEXOLE [Concomitant]
     Active Substance: PRAMIPEXOLE
     Indication: Restless legs syndrome
     Dates: start: 20130705, end: 20130705
  53. PRAMIPEXOLE [Concomitant]
     Active Substance: PRAMIPEXOLE
     Dates: start: 20130708, end: 20130808
  54. PRAMIPEXOLE [Concomitant]
     Active Substance: PRAMIPEXOLE
     Dates: start: 20130628, end: 20130628
  55. RAMIPRIL [Concomitant]
     Active Substance: RAMIPRIL
     Indication: Hypertension
     Dosage: 5/12.5 MG
     Dates: start: 201102
  56. RAMIPRIL [Concomitant]
     Active Substance: RAMIPRIL
     Indication: Hypertension
     Route: 048
     Dates: start: 20210831
  57. NABIXIMOLS [Concomitant]
     Active Substance: NABIXIMOLS
     Indication: Muscle spasticity
     Dates: start: 20140815
  58. NABIXIMOLS [Concomitant]
     Active Substance: NABIXIMOLS
     Dates: start: 20140729, end: 20140814
  59. SPASMEX (GERMANY) [Concomitant]
     Indication: Muscle spasticity
     Dates: start: 20140627, end: 20140729
  60. TERZOLIN [Concomitant]
     Indication: Eczema
     Dates: start: 20140704, end: 20150429
  61. TERZOLIN [Concomitant]
     Dates: start: 20160121, end: 20160315
  62. METHYLPREDNISOLONE [Concomitant]
     Active Substance: METHYLPREDNISOLONE
     Indication: Primary progressive multiple sclerosis
     Dates: start: 20140721, end: 20140723
  63. VITAMIN B COMPLEX [Concomitant]
     Active Substance: CYANOCOBALAMIN\DEXPANTHENOL\NIACINAMIDE\PYRIDOXINE HYDROCHLORIDE\RIBOFLAVIN 5^-PHOSPHATE SODIUM\THIA
     Dates: start: 20130408, end: 20130626
  64. VOLTAREN [Concomitant]
     Active Substance: DICLOFENAC SODIUM
     Indication: Neck pain
     Dates: start: 20140726, end: 20140730
  65. ZOVIRAX [Concomitant]
     Active Substance: ACYCLOVIR
     Indication: Oral herpes
     Dates: start: 20131017, end: 20131023
  66. CERTOPARIN SODIUM [Concomitant]
     Active Substance: CERTOPARIN SODIUM
     Indication: Thrombosis prophylaxis
     Dates: start: 20160504, end: 20160511
  67. TANNOSYNT [Concomitant]
     Indication: Fungal skin infection
     Dates: start: 20160511
  68. FLUPREDNIDENE ACETATE\MICONAZOLE NITRATE [Concomitant]
     Active Substance: FLUPREDNIDENE ACETATE\MICONAZOLE NITRATE
     Route: 061
     Dates: start: 20170808
  69. HYDROCHLOROTHIAZIDE [Concomitant]
     Active Substance: HYDROCHLOROTHIAZIDE
     Indication: Hypertension
     Route: 048
     Dates: start: 20170601
  70. TOVIAZ [Concomitant]
     Active Substance: FESOTERODINE FUMARATE
     Indication: Bladder dysfunction
     Route: 048
     Dates: start: 20180102
  71. ZINC GLUCONATE [Concomitant]
     Active Substance: ZINC GLUCONATE
     Route: 048
     Dates: start: 20161202
  72. EBASTINE [Concomitant]
     Active Substance: EBASTINE
     Indication: Seasonal allergy
     Route: 048
     Dates: start: 20200509
  73. NIFEDIPINE [Concomitant]
     Active Substance: NIFEDIPINE
     Dates: start: 20191231
  74. COPPER GLUCONATE [Concomitant]
     Active Substance: COPPER GLUCONATE
     Route: 048
     Dates: start: 20161202
  75. METHIONINE [Concomitant]
     Active Substance: METHIONINE
     Route: 048
     Dates: start: 20160802
  76. BOTOX [Concomitant]
     Active Substance: ONABOTULINUMTOXINA
     Indication: Muscle spasticity
     Route: 030
     Dates: start: 20220629, end: 20220629

REACTIONS (1)
  - Urinary tract infection [Recovered/Resolved]

NARRATIVE: CASE EVENT DATE: 20160503
